FAERS Safety Report 10971793 (Version 3)
Quarter: 2015Q2

REPORT INFORMATION
  Report Type: Report from Study
  Country: AU (occurrence: AU)
  Receive Date: 20150331
  Receipt Date: 20150610
  Transmission Date: 20150821
  Serious: Yes (Death)
  Sender: FDA-Public Use
  Company Number: PHHY2015AU038211

PATIENT
  Age: 25 Year
  Sex: Male

DRUGS (1)
  1. CLOZARIL [Suspect]
     Active Substance: CLOZAPINE
     Indication: SCHIZOPHRENIA
     Dosage: 550 OT, UNK
     Route: 048
     Dates: start: 20050503

REACTIONS (2)
  - Hyperlipidaemia [Unknown]
  - Pancreatitis acute [Fatal]

NARRATIVE: CASE EVENT DATE: 20150325
